FAERS Safety Report 7265736-6 (Version None)
Quarter: 2011Q1

REPORT INFORMATION
  Report Type: 
  Country: None (occurrence: None)
  Receive Date: 20110131
  Receipt Date: 20110118
  Transmission Date: 20110831
  Serious: Yes (Hospitalization, Other)
  Sender: FDA-Public Use
  Company Number: US-ELI_LILLY_AND_COMPANY-US201012002373

PATIENT
  Sex: Male
  Weight: 56.78 kg

DRUGS (17)
  1. ALIMTA [Suspect]
  2. NEURONTIN [Concomitant]
     Dosage: 100 MG, 3/D
     Route: 048
  3. MEGACE [Concomitant]
     Dosage: 5 MG, DAILY (1/D)
     Route: 048
     Dates: start: 20101021
  4. VIAGRA [Concomitant]
     Dosage: 25 MG, AS NEEDED
     Dates: start: 20101021
  5. LIDODERM [Concomitant]
     Dosage: UNK, AS NEEDED
     Route: 062
  6. PRILOSEC [Concomitant]
     Dosage: 20 MG, DAILY (1/D)
  7. PERCOCET [Concomitant]
     Indication: PAIN
     Dosage: 1 D/F, AS NEEDED
  8. COMPAZINE [Concomitant]
     Indication: NAUSEA
     Dosage: 10 MG, AS NEEDED
     Dates: start: 20101021
  9. HYDRODIURIL [Concomitant]
     Dosage: 50 MG, DAILY (1/D)
     Route: 048
  10. REMERON [Concomitant]
     Dosage: 30 MG, AS NEEDED
  11. DECADRON [Concomitant]
     Dosage: 4 MG, UNK
  12. METHADONE HCL [Concomitant]
     Dosage: 5 MG, AS NEEDED
  13. ACTOS [Concomitant]
     Dosage: 30 MG, DAILY (1/D)
     Route: 048
  14. DECLOMYCIN [Concomitant]
     Dosage: 150 MG, 2/D
     Route: 048
     Dates: start: 20101220
  15. PRINIVIL [Concomitant]
     Dosage: 40 MG, DAILY (1/D)
  16. FOLIC ACID [Concomitant]
     Dosage: 40 UG, DAILY (1/D)
     Route: 048
  17. MARINOL [Concomitant]
     Dosage: 5 MG, 2/D
     Route: 048
     Dates: start: 20101216

REACTIONS (1)
  - PANCREATITIS [None]
